FAERS Safety Report 7605991-3 (Version None)
Quarter: 2011Q3

REPORT INFORMATION
  Report Type: 
  Country: None (occurrence: None)
  Receive Date: 20110713
  Receipt Date: 20110701
  Transmission Date: 20111222
  Serious: Yes (Other)
  Sender: FDA-Public Use
  Company Number: PHEH2009US11119

PATIENT
  Sex: Female
  Weight: 41.8 kg

DRUGS (10)
  1. EXJADE [Suspect]
     Indication: SICKLE CELL ANAEMIA
     Dosage: 250 MG, TID
     Route: 048
     Dates: start: 20080501, end: 20081201
  2. EXJADE [Suspect]
     Indication: SERUM FERRITIN INCREASED
  3. HYDREA [Concomitant]
  4. PERCOCET [Concomitant]
     Indication: PAIN
     Dosage: 10 MG, BID
     Route: 048
  5. PHENERGAN HCL [Concomitant]
     Indication: NAUSEA
     Dosage: 25 MG, BID
     Route: 048
  6. LORTAB [Concomitant]
  7. CALCIUM CARBONATE [Concomitant]
  8. VITAMIN D [Concomitant]
  9. EXJADE [Suspect]
     Indication: IRON METABOLISM DISORDER
     Dosage: 750 MG, DAILY
     Route: 048
     Dates: start: 20110601
  10. CLARINEX [Concomitant]
     Dosage: 5 MG, QD
     Route: 048

REACTIONS (9)
  - NAUSEA [None]
  - HEADACHE [None]
  - CHEST PAIN [None]
  - CHOLELITHIASIS [None]
  - AGGRESSION [None]
  - PAIN [None]
  - SKIN EXFOLIATION [None]
  - RASH [None]
  - INAPPROPRIATE SCHEDULE OF DRUG ADMINISTRATION [None]
